APPROVED DRUG PRODUCT: LAMISIL AT
Active Ingredient: TERBINAFINE HYDROCHLORIDE
Strength: 1%
Dosage Form/Route: SPRAY;TOPICAL
Application: N021124 | Product #002
Applicant: KARO HEALTHCARE INC
Approved: Mar 17, 2000 | RLD: Yes | RS: Yes | Type: OTC